FAERS Safety Report 5677821-0 (Version None)
Quarter: 2008Q1

REPORT INFORMATION
  Report Type: 
  Country: None (occurrence: None)
  Receive Date: 20080318
  Receipt Date: 20080304
  Transmission Date: 20080703
  Serious: Yes (Hospitalization)
  Sender: FDA-Public Use
  Company Number: 2007US002917

PATIENT
  Age: 41 Year
  Sex: Male
  Weight: 103.9 kg

DRUGS (1)
  1. AMEVIVE [Suspect]
     Indication: PSORIASIS
     Dosage: 15 MG WEEKLY INTRAMUSCULAR
     Route: 030
     Dates: start: 20040224, end: 20060912

REACTIONS (2)
  - GROIN INFECTION [None]
  - STAPHYLOCOCCAL INFECTION [None]
